FAERS Safety Report 10388837 (Version 1)
Quarter: 2014Q1

REPORT INFORMATION
  Report Type: Spontaneous
  Country: US (occurrence: None)
  Receive Date: 20140306
  Receipt Date: 20140306
  Transmission Date: 20141002
  Serious: Yes (Other)
  Sender: FDA-Public Use
  Company Number: 163-21880-13105057

PATIENT
  Age: 73 Year
  Sex: Female
  Weight: 43.55 kg

DRUGS (6)
  1. REVLIMID (LENALIDOMIDE) (25 MILLIGRAM, CAPSULES) [Suspect]
     Indication: PLASMA CELL MYELOMA
     Dosage: 25 MG, 21 IN 28 D, PO
     Route: 048
     Dates: start: 201206
  2. CARFILZOMIB [Concomitant]
  3. DEXAMETHASONE [Concomitant]
  4. CARBIDOPA /LEVODOPA (SINEMET) [Concomitant]
  5. OMEPRAZOLE [Concomitant]
  6. GABAPENTIN [Concomitant]

REACTIONS (2)
  - Neutrophil count decreased [None]
  - Platelet count decreased [None]
